FAERS Safety Report 7942283-7 (Version None)
Quarter: 2011Q4

REPORT INFORMATION
  Report Type: 
  Country: None (occurrence: None)
  Receive Date: 20111128
  Receipt Date: 20111109
  Transmission Date: 20120403
  Serious: No
  Sender: FDA-Public Use
  Company Number: US-ABBOTT-11P-163-0873050-00

PATIENT
  Age: 75 Year
  Sex: Male
  Weight: 102.15 kg

DRUGS (5)
  1. UNKNOWN MEDICATION [Concomitant]
     Indication: CONVULSION
  2. RYTHMOL [Concomitant]
     Indication: ARRHYTHMIA
  3. ANDROGEL [Suspect]
     Indication: BLOOD TESTOSTERONE DECREASED
     Dates: start: 20110101, end: 20110901
  4. UNKNOWN MEDICATION [Concomitant]
     Indication: GLAUCOMA
     Route: 047
  5. ANDROGEL [Suspect]
     Indication: BLOOD TESTOSTERONE DECREASED
     Dates: start: 20110101, end: 20110101

REACTIONS (3)
  - ASTHENIA [None]
  - BLOOD TESTOSTERONE DECREASED [None]
  - MUSCLE ATROPHY [None]
